FAERS Safety Report 18618418 (Version 6)
Quarter: 2021Q1

REPORT INFORMATION
  Report Type: Report from Study
  Country: JP (occurrence: JP)
  Receive Date: 20201215
  Receipt Date: 20210202
  Transmission Date: 20210419
  Serious: Yes (Death, Hospitalization)
  Sender: FDA-Public Use
  Company Number: JP-OTSUKA-2020_031557

PATIENT
  Age: 89 Year
  Sex: Male
  Weight: 48.3 kg

DRUGS (15)
  1. DONEPEZIL HYDROCHLORIDE. [Concomitant]
     Active Substance: DONEPEZIL HYDROCHLORIDE
     Indication: DEMENTIA
     Dosage: 5 MG, QD, AFTER BREAKFAST
     Route: 048
     Dates: end: 20201209
  2. BREXPIPRAZOLE [Suspect]
     Active Substance: BREXPIPRAZOLE
     Indication: AGITATION
     Dosage: UNK (DOUBLE?BLIND PHASE), AFTER DINNER
     Route: 048
     Dates: start: 20200728
  3. BREXPIPRAZOLE [Suspect]
     Active Substance: BREXPIPRAZOLE
     Dosage: 1 MG, QD (AFTER DINNER)
     Route: 048
     Dates: start: 20201020, end: 20201026
  4. SODIUM PICOSULFATE [Concomitant]
     Active Substance: SODIUM PICOSULFATE
     Indication: CONSTIPATION
     Dosage: 10 TO 15 DROPS, AS NECESSARY
     Route: 048
     Dates: end: 20201209
  5. VALSARTAN. [Concomitant]
     Active Substance: VALSARTAN
     Indication: HYPERTENSION
     Dosage: 40 MG, QD, AFTER BREAKFAST
     Route: 048
     Dates: end: 20201209
  6. PRAVASTATIN SODIUM. [Concomitant]
     Active Substance: PRAVASTATIN SODIUM
     Indication: HYPERLIPIDAEMIA
     Dosage: 10 MG, QD, AFTER BREAKFAST
     Route: 048
     Dates: end: 20201209
  7. SENNOSIDE A+B CALCIUM [Concomitant]
     Active Substance: SENNOSIDES A AND B
     Indication: CONSTIPATION
     Dosage: 24 MG, QD, AFTER DINNER
     Route: 048
     Dates: end: 20201208
  8. TERBINAFINE HYDROCHLORIDE. [Concomitant]
     Active Substance: TERBINAFINE HYDROCHLORIDE
     Dosage: APPROPRIATE AMOUNT, QD
     Route: 061
     Dates: start: 20200805, end: 20210114
  9. FRADIOMYCIN SULFATE [Concomitant]
     Indication: DECUBITUS ULCER
     Dosage: 8 MG, QD
     Route: 062
     Dates: start: 20201208
  10. BREXPIPRAZOLE [Suspect]
     Active Substance: BREXPIPRAZOLE
     Dosage: 2 MG, QD (AFTER DINNER)
     Route: 048
     Dates: start: 20201027, end: 20201102
  11. NIFEDIPINE. [Concomitant]
     Active Substance: NIFEDIPINE
     Indication: HYPERTENSION
     Dosage: 20 MG, QD, AFTER BREAKFAST
     Route: 048
     Dates: end: 20201209
  12. BREXPIPRAZOLE [Suspect]
     Active Substance: BREXPIPRAZOLE
     Dosage: 0.5 MG, QD (AFTER DINNER)
     Route: 048
     Dates: start: 20201013, end: 20201019
  13. BREXPIPRAZOLE [Suspect]
     Active Substance: BREXPIPRAZOLE
     Indication: DEMENTIA ALZHEIMER^S TYPE
     Dosage: 1 MG, QD (AFTER DINNER)
     Route: 048
     Dates: start: 20201103, end: 20201208
  14. TERBINAFINE HYDROCHLORIDE. [Concomitant]
     Active Substance: TERBINAFINE HYDROCHLORIDE
     Indication: TINEA INFECTION
     Dosage: APPROPRIATE AMOUNT, QD
     Route: 062
     Dates: end: 20201209
  15. FRADIOMYCIN SULFATE [Concomitant]
     Dosage: 1 SHEET, QD
     Route: 061
     Dates: start: 20201208, end: 20210114

REACTIONS (2)
  - Marasmus [Fatal]
  - Pneumonia aspiration [Recovered/Resolved]

NARRATIVE: CASE EVENT DATE: 20201209
